FAERS Safety Report 19068931 (Version 1)
Quarter: 2021Q1

REPORT INFORMATION
  Report Type: Spontaneous
  Country: US (occurrence: US)
  Receive Date: 20210329
  Receipt Date: 20210329
  Transmission Date: 20210420
  Serious: Yes (Other)
  Sender: FDA-Public Use
  Company Number: US-PURDUE-USA-2021-0236923

PATIENT
  Age: 50 Year
  Sex: Male

DRUGS (2)
  1. AMIODARONE [Suspect]
     Active Substance: AMIODARONE
     Indication: ADJUVANT THERAPY
     Route: 065
  2. LIDOCAINE. [Suspect]
     Active Substance: LIDOCAINE
     Indication: ADJUVANT THERAPY
     Route: 062

REACTIONS (1)
  - Ventricular fibrillation [Unknown]
